FAERS Safety Report 14069129 (Version 1)
Quarter: 2017Q4

REPORT INFORMATION
  Report Type: Spontaneous
  Country: US (occurrence: US)
  Receive Date: 20171010
  Receipt Date: 20171010
  Transmission Date: 20180321
  Serious: Yes (Hospitalization, Disabling, Other)
  Sender: FDA-Public Use
  Company Number: US-BIOVITRUM-2017US0898

PATIENT
  Age: 68 Year
  Sex: Female
  Weight: 122.4 kg

DRUGS (13)
  1. LANTUS [Concomitant]
     Active Substance: INSULIN GLARGINE
  2. ENBREL [Suspect]
     Active Substance: ETANERCEPT
  3. KINERET [Suspect]
     Active Substance: ANAKINRA
  4. IRBESARTAN. [Concomitant]
     Active Substance: IRBESARTAN
  5. NEURONTIN [Concomitant]
     Active Substance: GABAPENTIN
  6. MS CONTIN [Concomitant]
     Active Substance: MORPHINE SULFATE
  7. OXYCODONE [Concomitant]
     Active Substance: OXYCODONE
  8. XELJANZ [Suspect]
     Active Substance: TOFACITINIB CITRATE
     Indication: RHEUMATOID ARTHRITIS
     Route: 048
     Dates: end: 2017
  9. XELJANZ [Suspect]
     Active Substance: TOFACITINIB CITRATE
     Route: 048
     Dates: start: 20170718, end: 201708
  10. HUMALOG [Concomitant]
     Active Substance: INSULIN LISPRO
  11. XELJANZ [Suspect]
     Active Substance: TOFACITINIB CITRATE
     Route: 048
     Dates: start: 20170906
  12. PREDNISONE. [Suspect]
     Active Substance: PREDNISONE
     Indication: HYPERTENSION
  13. METHOTREXATE. [Suspect]
     Active Substance: METHOTREXATE

REACTIONS (19)
  - Pneumonia [Unknown]
  - Deafness [Unknown]
  - Spinal fusion surgery [Unknown]
  - Respiratory failure [Unknown]
  - Gait inability [Unknown]
  - Paralysis [Not Recovered/Not Resolved]
  - Dysphagia [Unknown]
  - Pyrexia [Unknown]
  - Cellulitis [Unknown]
  - Fall [Unknown]
  - Body height decreased [Unknown]
  - Dysstasia [Unknown]
  - Seroma [Recovering/Resolving]
  - Immobile [Unknown]
  - Herpes zoster [Unknown]
  - Vertebroplasty [Unknown]
  - Speech disorder [Unknown]
  - Pleural effusion [Recovering/Resolving]
  - Muscle spasms [Not Recovered/Not Resolved]

NARRATIVE: CASE EVENT DATE: 2017
